FAERS Safety Report 21326251 (Version 1)
Quarter: 2022Q3

REPORT INFORMATION
  Report Type: Spontaneous
  Country: US (occurrence: US)
  Receive Date: 20220913
  Receipt Date: 20220913
  Transmission Date: 20221026
  Serious: No
  Sender: FDA-Public Use
  Company Number: US-PRINSTON PHARMACEUTICAL INC.-2022PRN00051

PATIENT
  Age: 52 Year
  Sex: Female
  Weight: 43.084 kg

DRUGS (11)
  1. ESCITALOPRAM [Suspect]
     Active Substance: ESCITALOPRAM OXALATE
     Indication: Anxiety
     Dosage: 5 MG, 1X/DAY
     Route: 048
     Dates: start: 20220215, end: 20220228
  2. ESCITALOPRAM (Lupin) [Concomitant]
     Dosage: UNK
     Dates: start: 20220215
  3. OMEPRAZOLE [Concomitant]
     Active Substance: OMEPRAZOLE
  4. LORATADINE [Concomitant]
     Active Substance: LORATADINE
  5. IBUPROFEN [Concomitant]
     Active Substance: IBUPROFEN
  6. VITAMIN D [Concomitant]
     Active Substance: VITAMIN D NOS
  7. VITAMIN B [Concomitant]
     Active Substance: VITAMIN B
  8. VITAMIN C [Concomitant]
     Active Substance: ASCORBIC ACID
  9. VITAMINS [Concomitant]
     Active Substance: VITAMINS
  10. CALCIUM [Concomitant]
     Active Substance: CALCIUM
  11. HERBALS\TURMERIC [Concomitant]
     Active Substance: HERBALS\TURMERIC

REACTIONS (5)
  - Rash pruritic [Not Recovered/Not Resolved]
  - Rash papular [Not Recovered/Not Resolved]
  - Reaction to excipient [Recovering/Resolving]
  - Diarrhoea [Recovering/Resolving]
  - Arthralgia [Recovering/Resolving]

NARRATIVE: CASE EVENT DATE: 20220217
